FAERS Safety Report 7905458-9 (Version None)
Quarter: 2011Q4

REPORT INFORMATION
  Report Type: 
  Country: None (occurrence: None)
  Receive Date: 20111110
  Receipt Date: 20111101
  Transmission Date: 20120403
  Serious: Yes (Other)
  Sender: FDA-Public Use
  Company Number: US-BIOGENIDEC-2011BI042032

PATIENT
  Age: 40 Year
  Sex: Female

DRUGS (1)
  1. TYSABRI [Suspect]
     Indication: MULTIPLE SCLEROSIS
     Route: 042
     Dates: start: 20080922, end: 20110708

REACTIONS (10)
  - HYPOAESTHESIA [None]
  - RENAL FAILURE [None]
  - BLOOD COUNT ABNORMAL [None]
  - DISTURBANCE IN ATTENTION [None]
  - CENTRAL NERVOUS SYSTEM INFECTION [None]
  - EAR PAIN [None]
  - OEDEMA PERIPHERAL [None]
  - HEADACHE [None]
  - HERPES VIRUS INFECTION [None]
  - DISORIENTATION [None]
